FAERS Safety Report 6014860-4 (Version None)
Quarter: 2008Q4

REPORT INFORMATION
  Report Type: 
  Country: None (occurrence: None)
  Receive Date: 20081219
  Receipt Date: 20081215
  Transmission Date: 20090506
  Serious: Yes (Hospitalization)
  Sender: FDA-Public Use
  Company Number: ES-ROXANE LABORATORIES, INC.-2008-RO-00423RO

PATIENT
  Age: 71 Year
  Sex: Female

DRUGS (4)
  1. METHOTREXATE [Suspect]
     Indication: PSORIASIS
     Dosage: 20MG
  2. NON-STEROIDAL ANTI-INFLAMMATORY AGENT [Suspect]
     Indication: PSORIASIS
  3. METHYLPREDNISOLONE 16MG TAB [Concomitant]
     Dosage: 80MG
     Route: 042
  4. ACID FOLIC [Concomitant]
     Route: 048

REACTIONS (8)
  - AZOTAEMIA [None]
  - DRUG INTERACTION [None]
  - DRUG TOXICITY [None]
  - HYPOTENSION [None]
  - NEUTROPHIL COUNT DECREASED [None]
  - PYREXIA [None]
  - TRANSIENT ACANTHOLYTIC DERMATOSIS [None]
  - WHITE BLOOD CELL COUNT DECREASED [None]
